FAERS Safety Report 9827266 (Version 1)
Quarter: 2014Q1

REPORT INFORMATION
  Report Type: Spontaneous
  Country: US (occurrence: US)
  Receive Date: 20140117
  Receipt Date: 20140117
  Transmission Date: 20141002
  Serious: Yes (Other)
  Sender: FDA-Public Use
  Company Number: US-BRISTOL-MYERS SQUIBB COMPANY-19833102

PATIENT
  Age: 65 Year
  Sex: Female
  Weight: 71.2 kg

DRUGS (1)
  1. IPILIMUMAB [Suspect]
     Indication: SMALL CELL LUNG CANCER

REACTIONS (2)
  - Small cell lung cancer recurrent [Unknown]
  - Off label use [Unknown]
